FAERS Safety Report 5932936-4 (Version None)
Quarter: 2008Q4

REPORT INFORMATION
  Report Type: 
  Country: None (occurrence: None)
  Receive Date: 20081028
  Receipt Date: 20081020
  Transmission Date: 20090506
  Serious: Yes (Death)
  Sender: FDA-Public Use
  Company Number: US-MERCK-0808USA04572

PATIENT
  Age: 70 Year
  Sex: Female

DRUGS (5)
  1. SINGULAIR [Suspect]
     Route: 048
     Dates: start: 20071101, end: 20080101
  2. [THERAPY UNSPECIFIED] [Concomitant]
     Route: 065
  3. EFFEXOR XR [Concomitant]
     Route: 065
  4. PREDNISONE [Concomitant]
     Route: 048
  5. HYDROCHLOROTHIAZIDE [Concomitant]
     Route: 048

REACTIONS (11)
  - CARDIOMEGALY [None]
  - CHEST DISCOMFORT [None]
  - CHEST PAIN [None]
  - COUGH [None]
  - DYSPNOEA [None]
  - FATIGUE [None]
  - HAEMATEMESIS [None]
  - MYOCARDIAL INFARCTION [None]
  - NASOPHARYNGITIS [None]
  - UPPER RESPIRATORY TRACT INFECTION [None]
  - WHEEZING [None]
